FAERS Safety Report 9667781 (Version 2)
Quarter: 2013Q4

REPORT INFORMATION
  Report Type: Report from Study
  Country: US (occurrence: US)
  Receive Date: 20131104
  Receipt Date: 20131205
  Transmission Date: 20140711
  Serious: Yes (Hospitalization, Other)
  Sender: FDA-Public Use
  Company Number: US-US-EMD SERONO, INC.-7246991

PATIENT
  Age: 62 Year
  Sex: Male
  Weight: 86 kg

DRUGS (1)
  1. REBIF [Suspect]
     Indication: MULTIPLE SCLEROSIS
     Route: 058
     Dates: start: 20040428

REACTIONS (4)
  - Atrial fibrillation [Recovered/Resolved]
  - Bacterial sepsis [Recovering/Resolving]
  - Multiple sclerosis relapse [Unknown]
  - Myalgia [Not Recovered/Not Resolved]
